FAERS Safety Report 10173066 (Version 1)
Quarter: 2014Q2

REPORT INFORMATION
  Report Type: Spontaneous
  Country: US (occurrence: None)
  Receive Date: 20140514
  Receipt Date: 20140514
  Transmission Date: 20141212
  Serious: Yes (Hospitalization)
  Sender: FDA-Public Use
  Company Number: None

PATIENT
  Age: 60 Year
  Sex: Female
  Weight: 68.04 kg

DRUGS (10)
  1. ADCIRCA 20 MGS TAB LUNG BIOTECHNOLOGY [Suspect]
     Indication: PULMONARY HYPERTENSION
     Route: 048
     Dates: start: 20140416
  2. PROPANOLOL [Concomitant]
  3. COUMADIN [Concomitant]
  4. LANTUS [Concomitant]
  5. HUMALOG [Concomitant]
  6. BUMETAMIDE [Concomitant]
  7. ALDACTONE [Concomitant]
  8. DIGOXIN [Concomitant]
  9. LOSAITAN [Concomitant]
  10. COREA [Concomitant]

REACTIONS (1)
  - Peripheral vascular disorder [None]
